FAERS Safety Report 9170870 (Version 1)
Quarter: 2013Q1

REPORT INFORMATION
  Report Type: Spontaneous
  Country: FR (occurrence: None)
  Receive Date: 20130311
  Receipt Date: 20130311
  Transmission Date: 20140127
  Serious: Yes (Other)
  Sender: FDA-Public Use
  Company Number: MPS-1000947

PATIENT
  Age: 4 Year
  Sex: Female

DRUGS (4)
  1. ALDURAZYME (LARONIDASE) CONCENTRATE FOR SOLUTION FOR INFUSION [Suspect]
     Indication: MUCOPOLYSACCHARIDOSIS I
     Route: 042
  2. ATARAX (HYDROXYZINE HYDROCHLORIDE) [Concomitant]
  3. DOLIPRANE (PARACETAMOL) [Concomitant]
  4. POLARAMINE (DEXCHLORPHENIRAMINE MALEATE) [Concomitant]

REACTIONS (9)
  - Anaphylactic shock [None]
  - Pyrexia [None]
  - Tachycardia [None]
  - Hypertension [None]
  - Chills [None]
  - Cyanosis [None]
  - Psychomotor hyperactivity [None]
  - Gastroenteritis [None]
  - Agitation [None]
